FAERS Safety Report 11753134 (Version 1)
Quarter: 2015Q4

REPORT INFORMATION
  Report Type: Spontaneous
  Country: US (occurrence: US)
  Receive Date: 20151119
  Receipt Date: 20151119
  Transmission Date: 20160304
  Serious: No
  Sender: FDA-Public Use
  Company Number: US-TEVA-609129ACC

PATIENT
  Age: 36 Year
  Sex: Female
  Weight: 61.74 kg

DRUGS (1)
  1. PARAGARD T 380A [Suspect]
     Active Substance: COPPER
     Indication: CONTRACEPTION
     Route: 015
     Dates: start: 20150909, end: 20151028

REACTIONS (7)
  - Vaginal haemorrhage [Recovered/Resolved]
  - Nausea [Recovered/Resolved]
  - Device expulsion [Recovered/Resolved]
  - Muscle spasms [Recovered/Resolved]
  - Discomfort [Unknown]
  - Vulvovaginal pruritus [Unknown]
  - Vaginal discharge [Recovered/Resolved]

NARRATIVE: CASE EVENT DATE: 20150925
